FAERS Safety Report 15109142 (Version 4)
Quarter: 2018Q3

REPORT INFORMATION
  Report Type: Spontaneous
  Country: US (occurrence: US)
  Receive Date: 20180705
  Receipt Date: 20180907
  Transmission Date: 20181010
  Serious: Yes (Hospitalization, Other)
  Sender: FDA-Public Use
  Company Number: US-ASTELLAS-2018US026681

PATIENT
  Sex: Female

DRUGS (1)
  1. XTANDI [Suspect]
     Active Substance: ENZALUTAMIDE
     Indication: PRODUCT USED FOR UNKNOWN INDICATION
     Dosage: UNK, UNKNOWN FREQ.
     Route: 065
     Dates: start: 201706

REACTIONS (8)
  - Rash [Not Recovered/Not Resolved]
  - Skin exfoliation [Recovered/Resolved]
  - Urticaria [Unknown]
  - Rash generalised [Unknown]
  - Accidental exposure to product [Unknown]
  - Blood sodium decreased [Recovered/Resolved]
  - Rash erythematous [Unknown]
  - Pruritus [Not Recovered/Not Resolved]

NARRATIVE: CASE EVENT DATE: 201806
